FAERS Safety Report 15073008 (Version 3)
Quarter: 2018Q3

REPORT INFORMATION
  Report Type: Report from Study
  Country: DE (occurrence: DE)
  Receive Date: 20180627
  Receipt Date: 20180823
  Transmission Date: 20181010
  Serious: Yes (Hospitalization)
  Sender: FDA-Public Use
  Company Number: DE-TEVA-2018-DE-912119

PATIENT
  Age: 79 Year
  Sex: Female
  Weight: 57 kg

DRUGS (21)
  1. HEPARIN [Concomitant]
     Active Substance: HEPARIN SODIUM
     Indication: PROPHYLAXIS
     Dosage: 5000 IU (INTERNATIONAL UNIT) DAILY;
     Route: 058
     Dates: start: 20170527
  2. IBUPROFEN. [Concomitant]
     Active Substance: IBUPROFEN
     Dosage: 600 MILLIGRAM DAILY;
     Route: 048
     Dates: start: 20170606, end: 20170619
  3. RAMIPRIL. [Concomitant]
     Active Substance: RAMIPRIL
     Indication: HYPERTENSION
     Dosage: 5 MILLIGRAM DAILY;
     Route: 048
     Dates: start: 20160804
  4. DEXAMETHASONE. [Suspect]
     Active Substance: DEXAMETHASONE
     Route: 065
     Dates: start: 20171018, end: 20171108
  5. BIFITERAL [Concomitant]
     Active Substance: LACTULOSE
     Indication: CONSTIPATION
     Dosage: 10 ML DAILY;
     Route: 048
     Dates: start: 20170606
  6. CEFUROXIM [Concomitant]
     Active Substance: CEFUROXIME
     Indication: NASOPHARYNGITIS
     Dosage: 1000 MILLIGRAM DAILY;
     Route: 048
     Dates: start: 20170515, end: 20170520
  7. TILIDIN [Concomitant]
     Active Substance: NALOXONE HYDROCHLORIDE\TILIDINE HYDROCHLORIDE
     Indication: SCIATICA
     Dosage: 50 MILLIGRAM DAILY;
     Route: 048
     Dates: start: 20170606, end: 20170619
  8. REVLIMID [Suspect]
     Active Substance: LENALIDOMIDE
     Dosage: 10 MILLIGRAM DAILY;
     Route: 048
     Dates: start: 20170511, end: 20170531
  9. REVLIMID [Suspect]
     Active Substance: LENALIDOMIDE
     Dosage: 10 MILLIGRAM DAILY;
     Route: 048
     Dates: start: 20171106, end: 20171106
  10. IBUPROFEN. [Concomitant]
     Active Substance: IBUPROFEN
     Indication: SCIATICA
  11. ASS?RATIOPHARM [Concomitant]
     Active Substance: ASPIRIN
     Indication: PROPHYLAXIS
     Dosage: 100 MILLIGRAM DAILY;
     Route: 048
     Dates: start: 20170316
  12. DEXAMETHASONE. [Suspect]
     Active Substance: DEXAMETHASONE
     Indication: PLASMA CELL MYELOMA
     Route: 065
     Dates: start: 20170608, end: 20170629
  13. DEXAMETHASONE. [Suspect]
     Active Substance: DEXAMETHASONE
     Route: 065
     Dates: start: 20170803, end: 20170824
  14. REVLIMID [Suspect]
     Active Substance: LENALIDOMIDE
     Indication: PLASMA CELL MYELOMA
     Dosage: 10 MILLIGRAM DAILY; 10 MILLIGRAM
     Route: 048
     Dates: start: 20171018, end: 20171102
  15. IBUPROFEN. [Concomitant]
     Active Substance: IBUPROFEN
     Indication: BACK PAIN
     Dosage: 18 MILLIGRAM DAILY;
     Route: 048
     Dates: start: 20170521, end: 20170521
  16. IBUPROFEN. [Concomitant]
     Active Substance: IBUPROFEN
     Indication: SCIATICA
     Dosage: 800 MILLIGRAM DAILY;
     Route: 048
     Dates: start: 20170507, end: 20170605
  17. PARACETAMOL BC [Concomitant]
     Indication: SCIATICA
     Dosage: 1000 MILLIGRAM DAILY;
     Route: 054
     Dates: start: 20170527
  18. DEXAMETHASONE. [Suspect]
     Active Substance: DEXAMETHASONE
     Route: 065
     Dates: start: 20170511, end: 20170601
  19. DEXAMETHASONE. [Suspect]
     Active Substance: DEXAMETHASONE
     Route: 065
     Dates: start: 20170706, end: 20170727
  20. RAMIPRIL. [Concomitant]
     Active Substance: RAMIPRIL
     Indication: HYPERTENSION
     Dosage: 10 MILLIGRAM DAILY;
     Route: 048
     Dates: start: 20171129
  21. PANTOPRAZOL [Concomitant]
     Active Substance: PANTOPRAZOLE SODIUM
     Indication: PROPHYLAXIS
     Dosage: 20 MILLIGRAM DAILY;
     Route: 048
     Dates: start: 20170427

REACTIONS (4)
  - Vertigo [Recovered/Resolved]
  - Hypertension [Recovered/Resolved]
  - Oral pain [Not Recovered/Not Resolved]
  - Vertigo [Recovered/Resolved]

NARRATIVE: CASE EVENT DATE: 20171103
